FAERS Safety Report 24567887 (Version 2)
Quarter: 2025Q3

REPORT INFORMATION
  Report Type: Spontaneous
  Country: EU (occurrence: EU)
  Receive Date: 20241031
  Receipt Date: 20250809
  Transmission Date: 20251020
  Serious: Yes (Other)
  Sender: ALEXION PHARMACEUTICALS
  Company Number: None

PATIENT
  Age: 73 Year
  Sex: Male

DRUGS (2)
  1. CRESTOR [Suspect]
     Active Substance: ROSUVASTATIN CALCIUM
     Indication: Product used for unknown indication
     Dosage: 10 MILLIGRAM, 1/DAY
  2. EZETIMIBE [Suspect]
     Active Substance: EZETIMIBE
     Route: 065

REACTIONS (2)
  - Myopathy [Recovered/Resolved]
  - Gait disturbance [Recovered/Resolved]
